FAERS Safety Report 6997552-4 (Version None)
Quarter: 2010Q3

REPORT INFORMATION
  Report Type: 
  Country: None (occurrence: None)
  Receive Date: 20100918
  Receipt Date: 20091026
  Transmission Date: 20110219
  Serious: Yes (Other)
  Sender: FDA-Public Use
  Company Number: US-WYE-H11866209

PATIENT
  Sex: Female
  Weight: 86.26 kg

DRUGS (6)
  1. PRISTIQ [Suspect]
     Indication: DEPRESSION
     Route: 048
     Dates: start: 20090808, end: 20090901
  2. PRISTIQ [Suspect]
     Dosage: WEANING OFF OF PRISTIQ
     Route: 048
     Dates: start: 20090901, end: 20091013
  3. PROZAC [Concomitant]
     Dates: start: 20090901
  4. BACLOFEN [Concomitant]
     Indication: MUSCLE SPASMS
  5. AMITRIPTYLINE HCL [Concomitant]
  6. KLONOPIN [Concomitant]

REACTIONS (8)
  - BLOOD PRESSURE INCREASED [None]
  - BODY TEMPERATURE INCREASED [None]
  - CHEST DISCOMFORT [None]
  - FLUID RETENTION [None]
  - HEADACHE [None]
  - HEART RATE INCREASED [None]
  - HYPERHIDROSIS [None]
  - WEIGHT INCREASED [None]
